FAERS Safety Report 20430280 (Version 1)
Quarter: 2022Q1

REPORT INFORMATION
  Report Type: Report from Study
  Country: FR (occurrence: FR)
  Receive Date: 20220204
  Receipt Date: 20220204
  Transmission Date: 20220423
  Serious: Yes (Hospitalization)
  Sender: FDA-Public Use
  Company Number: FR-SERVIER-S20005417

PATIENT

DRUGS (5)
  1. PEGASPARGASE [Suspect]
     Active Substance: PEGASPARGASE
     Indication: Acute lymphocytic leukaemia
     Dosage: 1050 IU, ON D64
     Route: 042
     Dates: start: 20181217
  2. PEGASPARGASE [Suspect]
     Active Substance: PEGASPARGASE
     Dosage: 2100 IU, ON D4, D43
     Route: 042
     Dates: start: 20190513, end: 20190703
  3. TN UNSPECIFIED [Concomitant]
     Indication: Acute lymphocytic leukaemia
     Dosage: 435 MG (D8)
     Route: 042
     Dates: start: 20190820, end: 20190820
  4. TN UNSPECIFIED [Concomitant]
     Dosage: 445 MG (D22)
     Route: 042
     Dates: start: 20190903, end: 20190903
  5. TN UNSPECIFIED [Concomitant]
     Indication: Acute lymphocytic leukaemia
     Dosage: 175 MG, (D1 TO D7)
     Route: 048
     Dates: start: 20190729

REACTIONS (2)
  - Staphylococcal sepsis [Recovered/Resolved]
  - Staphylococcal sepsis [Recovered/Resolved]

NARRATIVE: CASE EVENT DATE: 20190410
